FAERS Safety Report 8134654-3 (Version None)
Quarter: 2012Q1

REPORT INFORMATION
  Report Type: 
  Country: None (occurrence: None)
  Receive Date: 20120214
  Receipt Date: 20120208
  Transmission Date: 20120608
  Serious: Yes (Other)
  Sender: FDA-Public Use
  Company Number: US-PFIZER INC-2012034906

PATIENT
  Sex: Female
  Weight: 158.8 kg

DRUGS (9)
  1. LISINOPRIL [Concomitant]
     Indication: HYPERTENSION
     Dosage: 40 MG, 2X/DAY
  2. NORVASC [Concomitant]
     Indication: HYPERTENSION
     Dosage: 10 MG, DAILY
  3. NEURONTIN [Suspect]
     Indication: DIABETIC NEUROPATHY
     Dosage: 300 MG, DAILY
     Dates: start: 20120201, end: 20120201
  4. METFORMIN [Concomitant]
     Indication: DIABETES MELLITUS
     Dosage: 1000 MG, 2X/DAY
  5. LASIX [Suspect]
     Indication: FLUID RETENTION
     Dosage: 40 MG, DAILY
  6. JANUVIA [Concomitant]
     Indication: DIABETES MELLITUS
     Dosage: 100 MG, DAILY
  7. CARVEDILOL [Concomitant]
     Indication: HYPERTENSION
     Dosage: 25 MG, 2X/DAY
  8. CLONIDINE [Concomitant]
     Indication: HYPERTENSION
     Dosage: 0.2 MG, 3X/DAY
  9. AMARYL [Concomitant]
     Indication: DIABETES MELLITUS
     Dosage: 4 MG, DAILY

REACTIONS (3)
  - FLUID RETENTION [None]
  - DRUG INEFFECTIVE [None]
  - FLATULENCE [None]
